FAERS Safety Report 24994843 (Version 1)
Quarter: 2025Q1

REPORT INFORMATION
  Report Type: Spontaneous
  Country: US (occurrence: None)
  Receive Date: 20250220
  Receipt Date: 20250220
  Transmission Date: 20250408
  Serious: Yes (Hospitalization, Disabling)
  Sender: FDA-CTU
  Company Number: None

PATIENT
  Age: 65 Year
  Sex: Male
  Weight: 108 kg

DRUGS (8)
  1. PAXLOVID [Suspect]
     Active Substance: NIRMATRELVIR\RITONAVIR
     Indication: COVID-19
     Dosage: OTHER QUANTITY : 20 TABLET(S);?FREQUENCY : TWICE A DAY;?
     Route: 048
     Dates: start: 20230922, end: 20230922
  2. COLCHICINE [Suspect]
     Active Substance: COLCHICINE
  3. ALLOPURINOL [Concomitant]
     Active Substance: ALLOPURINOL
  4. CARVEDILOL [Concomitant]
     Active Substance: CARVEDILOL
  5. LOSARTAN [Concomitant]
     Active Substance: LOSARTAN
  6. TORSEMIDE [Concomitant]
     Active Substance: TORSEMIDE
  7. Spironolactin [Concomitant]
  8. ASPIRIN [Concomitant]
     Active Substance: ASPIRIN

REACTIONS (5)
  - Jaw disorder [None]
  - Transient ischaemic attack [None]
  - Cerebrovascular accident [None]
  - Contraindicated product prescribed [None]
  - Contraindicated product administered [None]

NARRATIVE: CASE EVENT DATE: 20230922
